FAERS Safety Report 24267797 (Version 1)
Quarter: 2024Q3

REPORT INFORMATION
  Report Type: Spontaneous
  Country: CH (occurrence: CH)
  Receive Date: 20240830
  Receipt Date: 20240830
  Transmission Date: 20241016
  Serious: Yes (Hospitalization)
  Sender: TEVA
  Company Number: None

PATIENT
  Age: 54 Year
  Sex: Male
  Weight: 89.7 kg

DRUGS (17)
  1. VANCOCIN [Suspect]
     Active Substance: VANCOMYCIN HYDROCHLORIDE
     Indication: Meningitis bacterial
     Route: 065
     Dates: start: 20240114, end: 20240114
  2. VANCOCIN [Suspect]
     Active Substance: VANCOMYCIN HYDROCHLORIDE
     Indication: Meningitis bacterial
     Dosage: 1 G I.V. IN 500 ML NACL MIT 150 ML/H 1-0-1
     Route: 040
     Dates: start: 20231220, end: 20240104
  3. BACTRIM [Concomitant]
     Active Substance: SULFAMETHOXAZOLE\TRIMETHOPRIM
     Indication: Meningitis bacterial
     Dosage: BACTRIM FORTE X/D
     Route: 048
     Dates: start: 20240110, end: 20240114
  4. DAFALGAN [Concomitant]
     Active Substance: ACETAMINOPHEN
     Indication: Product used for unknown indication
     Dosage: 1-0-1-0
     Route: 048
     Dates: start: 20231219, end: 20240114
  5. IBUPROFEN [Concomitant]
     Active Substance: IBUPROFEN
     Indication: Product used for unknown indication
     Dosage: TIME INTERVAL: AS NECESSARY: IN RESERVE MAX 4X/D
     Route: 048
     Dates: start: 20231219, end: 20240114
  6. VALSARTAN [Concomitant]
     Active Substance: VALSARTAN
     Indication: Hypertension
     Dosage: : IN HOSPITAL CANDESARTAN SANDOZ 16 MG/DAY FROM 19.12.23- 04.01.24,
     Route: 048
     Dates: end: 20231218
  7. VALSARTAN [Concomitant]
     Active Substance: VALSARTAN
     Indication: Hypertension
     Route: 048
     Dates: start: 20240105, end: 20240110
  8. LEVOFLOXACIN [Concomitant]
     Active Substance: LEVOFLOXACIN
     Indication: Meningitis bacterial
     Dosage: 500 MG P.O. 1.5 1X/D
     Route: 048
     Dates: start: 20240105, end: 20240110
  9. RIFAMPIN [Suspect]
     Active Substance: RIFAMPIN
     Indication: Meningitis bacterial
     Dosage: 1-0-1-0
     Route: 048
     Dates: start: 20240105, end: 20240110
  10. CANDESARTAN [Concomitant]
     Active Substance: CANDESARTAN
     Indication: Product used for unknown indication
     Route: 048
     Dates: start: 20231219, end: 20240104
  11. CEFEPIME [Concomitant]
     Active Substance: CEFEPIME HYDROCHLORIDE
     Indication: Meningitis bacterial
     Dosage: DRY SUBSTANCE 2G I.V. 1 G IN 100 ML NACL 1-1-1
     Route: 040
     Dates: start: 20231220, end: 20240104
  12. CEFEPIME [Concomitant]
     Active Substance: CEFEPIME HYDROCHLORIDE
     Indication: Meningitis bacterial
     Dates: start: 20240114, end: 20240115
  13. METAMIZOLE [Concomitant]
     Active Substance: METAMIZOLE
     Indication: Product used for unknown indication
     Dosage: TIME INTERVAL: AS NECESSARY: IN RESERVE
     Route: 048
     Dates: start: 20231220, end: 20240104
  14. METAMIZOLE [Concomitant]
     Active Substance: METAMIZOLE
     Indication: Product used for unknown indication
     Dosage: 0-1-1-1
     Route: 048
     Dates: start: 20240105, end: 20240112
  15. AMLODIPINE [Concomitant]
     Active Substance: AMLODIPINE BESYLATE
     Indication: Hypertension
     Route: 048
  16. AMOXICILLIN [Suspect]
     Active Substance: AMOXICILLIN
     Indication: Meningitis bacterial
     Dosage: AMOXICILLIN ORPHA
     Route: 040
     Dates: start: 20240110, end: 20240112
  17. AMOXICILLIN [Suspect]
     Active Substance: AMOXICILLIN
     Indication: Meningitis bacterial
     Dosage: 500MG 3X2/D
     Route: 048
     Dates: start: 20240112, end: 20240114

REACTIONS (2)
  - Drug reaction with eosinophilia and systemic symptoms [Recovering/Resolving]
  - Rash maculo-papular [Recovering/Resolving]

NARRATIVE: CASE EVENT DATE: 20240107
